FAERS Safety Report 4801511-7 (Version None)
Quarter: 2005Q4

REPORT INFORMATION
  Report Type: 
  Country: None (occurrence: None)
  Receive Date: 20051011
  Receipt Date: 20051011
  Transmission Date: 20060501
  Serious: Yes (Other)
  Sender: FDA-Public Use
  Company Number: None

PATIENT
  Sex: Female
  Weight: 81.6475 kg

DRUGS (2)
  1. METOLAZONE [Suspect]
     Indication: DIURETIC THERAPY
     Dosage: 5 MG PO BID
     Route: 048
  2. METHADOSE [Suspect]
     Indication: ANALGESIC EFFECT
     Dosage: 5 MG PO BID
     Route: 048

REACTIONS (2)
  - DRUG DISPENSING ERROR [None]
  - MEDICATION ERROR [None]
